FAERS Safety Report 13324189 (Version 1)
Quarter: 2017Q1

REPORT INFORMATION
  Report Type: Spontaneous
  Country: ES (occurrence: ES)
  Receive Date: 20170310
  Receipt Date: 20170310
  Transmission Date: 20170428
  Serious: Yes (Death, Hospitalization, Other)
  Sender: FDA-Public Use
  Company Number: ES-TEVA-746225ROM

PATIENT
  Age: 28 Year
  Sex: Female

DRUGS (1)
  1. TACROLIMUS. [Suspect]
     Active Substance: TACROLIMUS
     Indication: LIVER TRANSPLANT
     Route: 065

REACTIONS (7)
  - Venoocclusive liver disease [Unknown]
  - Multiple organ dysfunction syndrome [Fatal]
  - Encephalopathy [Unknown]
  - Internal haemorrhage [Fatal]
  - Acute hepatic failure [Unknown]
  - Acute kidney injury [Unknown]
  - Toxicity to various agents [Unknown]
